FAERS Safety Report 11310238 (Version 2)
Quarter: 2015Q4

REPORT INFORMATION
  Report Type: Spontaneous
  Country: US (occurrence: US)
  Receive Date: 20150724
  Receipt Date: 20151006
  Transmission Date: 20160304
  Serious: Yes (Hospitalization, Disabling, Other)
  Sender: FDA-Public Use
  Company Number: US-009507513-1204USA00488

PATIENT
  Sex: Female

DRUGS (4)
  1. ACTONEL [Suspect]
     Active Substance: RISEDRONATE SODIUM
     Dosage: 35 MG, QW
     Route: 048
     Dates: start: 2005, end: 201108
  2. ACTONEL [Suspect]
     Active Substance: RISEDRONATE SODIUM
     Indication: OSTEOPOROSIS
     Dosage: 150 MG, QM
     Route: 048
     Dates: start: 2005, end: 201108
  3. ALENDRONATE SODIUM. [Suspect]
     Active Substance: ALENDRONATE SODIUM
     Indication: OSTEOPOROSIS
     Dosage: 70 MG, BIW
     Route: 048
     Dates: start: 20110822, end: 20110923
  4. FOSAMAX [Suspect]
     Active Substance: ALENDRONATE SODIUM
     Indication: OSTEOPOROSIS
     Dosage: 70 MG, QW
     Route: 048
     Dates: start: 20110822, end: 20110930

REACTIONS (16)
  - Arthritis [Unknown]
  - Cardiomegaly [Unknown]
  - Low turnover osteopathy [Unknown]
  - Joint dislocation [Unknown]
  - Cyst [Unknown]
  - Neuropathy peripheral [Unknown]
  - Sleep apnoea syndrome [Unknown]
  - Myocardial infarction [Unknown]
  - Fracture delayed union [Recovering/Resolving]
  - Atelectasis [Unknown]
  - Spinal osteoarthritis [Unknown]
  - Osteoporosis [Unknown]
  - Uterine leiomyoma [Unknown]
  - Diverticulum [Unknown]
  - Fall [Unknown]
  - Femur fracture [Recovering/Resolving]

NARRATIVE: CASE EVENT DATE: 2011
